FAERS Safety Report 5935391-3 (Version None)
Quarter: 2008Q4

REPORT INFORMATION
  Report Type: 
  Country: None (occurrence: None)
  Receive Date: 20081030
  Receipt Date: 20081021
  Transmission Date: 20090506
  Serious: Yes (Other)
  Sender: FDA-Public Use
  Company Number: GB-JNJFOC-20080906089

PATIENT
  Sex: Male

DRUGS (3)
  1. TOPAMAX [Suspect]
     Route: 048
  2. TOPAMAX [Suspect]
     Indication: DRUG USE FOR UNKNOWN INDICATION
     Route: 048
  3. VALPROATE SODIUM [Concomitant]
     Indication: EPILEPSY

REACTIONS (3)
  - ANOREXIA [None]
  - BALANCE DISORDER [None]
  - SOMNOLENCE [None]
